FAERS Safety Report 14305753 (Version 1)
Quarter: 2017Q4

REPORT INFORMATION
  Report Type: Report from Study
  Country: US (occurrence: US)
  Receive Date: 20171219
  Receipt Date: 20171219
  Transmission Date: 20180321
  Serious: Yes (Other)
  Sender: FDA-Public Use
  Company Number: US-GILEAD-2017-0310828

PATIENT
  Age: 68 Year
  Sex: Female

DRUGS (28)
  1. CALCIUM CARBONATE. [Concomitant]
     Active Substance: CALCIUM CARBONATE
  2. METOPROL XL [Concomitant]
  3. VIT B 12 [Concomitant]
  4. DIGOXIN. [Concomitant]
     Active Substance: DIGOXIN
  5. AMIODARONE [Concomitant]
     Active Substance: AMIODARONE
  6. FENOFIBRATE. [Concomitant]
     Active Substance: FENOFIBRATE
  7. AMBRISENTAN [Suspect]
     Active Substance: AMBRISENTAN
     Indication: PULMONARY HYPERTENSION
     Dosage: 10 MG, QD
     Route: 065
     Dates: start: 201301
  8. KLONOPIN [Concomitant]
     Active Substance: CLONAZEPAM
  9. LASIX [Concomitant]
     Active Substance: FUROSEMIDE
  10. SYMBICORT [Concomitant]
     Active Substance: BUDESONIDE\FORMOTEROL FUMARATE DIHYDRATE
  11. BUPROPION. [Concomitant]
     Active Substance: BUPROPION
  12. COLESTIPOL [Concomitant]
     Active Substance: COLESTIPOL
  13. CULTURELLE [Concomitant]
     Active Substance: LACTOBACILLUS RHAMNOSUS
  14. QUETIAPINE. [Concomitant]
     Active Substance: QUETIAPINE
  15. SPIRONOLACTON [Concomitant]
     Active Substance: SPIRONOLACTONE
  16. ARMOUR THYROID [Concomitant]
     Active Substance: THYROID, PORCINE
  17. LEVOCETIRIZIN [Concomitant]
     Active Substance: LEVOCETIRIZINE DIHYDROCHLORIDE
  18. PROAIR HFA [Concomitant]
     Active Substance: ALBUTEROL SULFATE
  19. BEVESPI AEROSPHERE [Concomitant]
     Active Substance: FORMOTEROL FUMARATE\GLYCOPYRROLATE
  20. COUMADIN [Concomitant]
     Active Substance: WARFARIN SODIUM
  21. LEVOTHYROXIN [Concomitant]
     Active Substance: LEVOTHYROXINE
  22. VITAMIN D3 [Concomitant]
     Active Substance: CHOLECALCIFEROL
  23. METFORMIN [Concomitant]
     Active Substance: METFORMIN HYDROCHLORIDE
  24. ZANTAC [Concomitant]
     Active Substance: RANITIDINE HYDROCHLORIDE
  25. FUROSEMIDE. [Concomitant]
     Active Substance: FUROSEMIDE
  26. PANTOPRAZOLE [Concomitant]
     Active Substance: PANTOPRAZOLE
  27. ROPINIROLE. [Concomitant]
     Active Substance: ROPINIROLE
  28. BENEFIBER                          /00677201/ [Concomitant]
     Active Substance: ICODEXTRIN

REACTIONS (2)
  - Pneumonia [Recovering/Resolving]
  - Intentional dose omission [Unknown]

NARRATIVE: CASE EVENT DATE: 201711
